FAERS Safety Report 5094825-X (Version None)
Quarter: 2006Q3

REPORT INFORMATION
  Report Type: 
  Country: None (occurrence: None)
  Receive Date: 20060830
  Receipt Date: 20060830
  Transmission Date: 20061208
  Serious: Yes (Life-Threatening, Hospitalization)
  Sender: FDA-Public Use
  Company Number: None

PATIENT
  Age: 64 Year
  Sex: Male
  Weight: 63.5 kg

DRUGS (8)
  1. ALLOPURINOL [Suspect]
  2. ASPIRIN [Concomitant]
  3. SANDIMMUNE [Concomitant]
  4. OMEPRAZOLE [Concomitant]
  5. EZETIMIBE [Concomitant]
  6. CALCITRIOL [Concomitant]
  7. PREDNISONE TAB [Concomitant]
  8. AZATHIOPRINE [Concomitant]

REACTIONS (1)
  - NEUTROPENIA [None]
